FAERS Safety Report 8999651 (Version 1)
Quarter: 2013Q1

REPORT INFORMATION
  Report Type: Spontaneous
  Country: US (occurrence: US)
  Receive Date: 20130102
  Receipt Date: 20130102
  Transmission Date: 20140127
  Serious: No
  Sender: FDA-Public Use
  Company Number: US-ASTRAZENECA-2001UW14205

PATIENT
  Age: 72 Year
  Sex: Female
  Weight: 72.6 kg

DRUGS (1)
  1. NEXIUM [Suspect]
     Route: 048
     Dates: start: 200110

REACTIONS (3)
  - Memory impairment [Unknown]
  - Mental impairment [Unknown]
  - Constipation [Unknown]
